APPROVED DRUG PRODUCT: ARDUAN
Active Ingredient: PIPECURONIUM BROMIDE
Strength: 10MG/VIAL
Dosage Form/Route: INJECTABLE;INJECTION
Application: N019638 | Product #001
Applicant: ORGANON USA INC
Approved: Jun 26, 1990 | RLD: No | RS: No | Type: DISCN